FAERS Safety Report 7719265-3 (Version None)
Quarter: 2011Q3

REPORT INFORMATION
  Report Type: 
  Country: None (occurrence: None)
  Receive Date: 20110830
  Receipt Date: 20110818
  Transmission Date: 20111222
  Serious: Yes (Other)
  Sender: FDA-Public Use
  Company Number: US-UCBSA-039209

PATIENT
  Age: 21 Year
  Sex: Female
  Weight: 72 kg

DRUGS (3)
  1. VIMPAT [Suspect]
     Dates: start: 20110711
  2. LEVETIRACETAM [Suspect]
     Dates: start: 20100101, end: 20100910
  3. LAMICTAL [Concomitant]
     Indication: EPILEPSY
     Dosage: TOTAL DAILY DOSE: 450 MG
     Route: 048
     Dates: start: 20110711

REACTIONS (15)
  - SYNCOPE [None]
  - FATIGUE [None]
  - WEIGHT DECREASED [None]
  - MOOD SWINGS [None]
  - DISORIENTATION [None]
  - INSOMNIA [None]
  - NAUSEA [None]
  - DRUG INEFFECTIVE [None]
  - DIZZINESS [None]
  - MOTION SICKNESS [None]
  - HEART RATE INCREASED [None]
  - DEPRESSION [None]
  - VOMITING [None]
  - SOMNOLENCE [None]
  - DYSMENORRHOEA [None]
